FAERS Safety Report 7944867-9 (Version None)
Quarter: 2011Q4

REPORT INFORMATION
  Report Type: 
  Country: None (occurrence: None)
  Receive Date: 20111129
  Receipt Date: 20110624
  Transmission Date: 20120403
  Serious: No
  Sender: FDA-Public Use
  Company Number: US-MYLANLABS-2011S1011561

PATIENT
  Age: 64 Year
  Sex: Male

DRUGS (4)
  1. LISINOPRIL [Concomitant]
  2. ASPIRIN [Concomitant]
  3. AMLODIPINE BESYLATE [Suspect]
     Indication: BLOOD PRESSURE INCREASED
     Route: 048
     Dates: start: 20110101, end: 20110501
  4. SIMVASTATIN [Concomitant]

REACTIONS (2)
  - CHOKING [None]
  - FOREIGN BODY [None]
